FAERS Safety Report 7010301-9 (Version None)
Quarter: 2010Q3

REPORT INFORMATION
  Report Type: 
  Country: None (occurrence: None)
  Receive Date: 20100923
  Receipt Date: 20100920
  Transmission Date: 20110219
  Serious: Yes (Hospitalization)
  Sender: FDA-Public Use
  Company Number: A0882709A

PATIENT
  Age: 46 Year
  Sex: Female

DRUGS (1)
  1. AVANDIA [Suspect]
     Dosage: 2MG TWICE PER DAY
     Dates: start: 20040601, end: 20090701

REACTIONS (3)
  - ARTERIOSCLEROSIS [None]
  - NEUROPATHY PERIPHERAL [None]
  - THROMBOSIS [None]
